FAERS Safety Report 12007913 (Version 2)
Quarter: 2016Q1

REPORT INFORMATION
  Report Type: Spontaneous
  Country: FR (occurrence: FR)
  Receive Date: 20160205
  Receipt Date: 20160315
  Transmission Date: 20160526
  Serious: Yes (Congenital Anomaly)
  Sender: FDA-Public Use
  Company Number: FR-009507513-1602FRA002882

PATIENT
  Age: 0 Day
  Sex: Female

DRUGS (3)
  1. DONORMYL [Suspect]
     Active Substance: DOXYLAMINE SUCCINATE
     Dosage: 0.5 TABLET IN THE EVENING BEFORE GOING TO BED
     Route: 064
     Dates: start: 20150409, end: 201507
  2. AERIUS [Suspect]
     Active Substance: DESLORATADINE
     Dosage: 1 DOSAGE FORM (DF) PER DAY
     Route: 064
  3. OMEPRAZOLE. [Suspect]
     Active Substance: OMEPRAZOLE
     Dosage: 20 MG, 1 TO 2 PER DAY
     Route: 064

REACTIONS (1)
  - Heart disease congenital [Not Recovered/Not Resolved]

NARRATIVE: CASE EVENT DATE: 20151125
